FAERS Safety Report 8972764 (Version 1)
Quarter: 2012Q4

REPORT INFORMATION
  Report Type: 
  Country: SE (occurrence: SE)
  Receive Date: 20121218
  Receipt Date: 20121218
  Transmission Date: 20130627
  Serious: Yes (Other)
  Sender: FDA-Public Use
  Company Number: SE-ROCHE-1168735

PATIENT
  Age: 59 Year
  Sex: Male

DRUGS (3)
  1. COPEGUS [Suspect]
     Indication: AMYOTROPHIC LATERAL SCLEROSIS
     Dosage: 1 GMD
     Route: 048
     Dates: start: 20120911
  2. EFAVIRENZ [Suspect]
     Indication: AMYOTROPHIC LATERAL SCLEROSIS
     Dosage: 600 MGD
     Route: 065
     Dates: start: 20120809
  3. RILUTEK [Concomitant]
     Route: 065

REACTIONS (1)
  - Venous thrombosis [Recovered/Resolved]
